FAERS Safety Report 8204069-8 (Version None)
Quarter: 2012Q1

REPORT INFORMATION
  Report Type: 
  Country: None (occurrence: None)
  Receive Date: 20120313
  Receipt Date: 20120308
  Transmission Date: 20120608
  Serious: No
  Sender: FDA-Public Use
  Company Number: US-PFIZER INC-2012062661

PATIENT
  Sex: Female
  Weight: 41.723 kg

DRUGS (6)
  1. LISINOPRIL [Concomitant]
     Dosage: UNK
  2. PROTONIX [Concomitant]
     Dosage: UNK
  3. ACETYLSALICYLIC ACID [Concomitant]
     Dosage: UNK
  4. AMLODIPINE [Concomitant]
     Dosage: UNK
  5. FLECTOR [Suspect]
     Indication: ARTHRALGIA
     Dosage: ONCE A DAY
     Dates: start: 20120301
  6. EFFEXOR XR [Concomitant]
     Dosage: UNK

REACTIONS (1)
  - DRUG INEFFECTIVE [None]
